FAERS Safety Report 14304819 (Version 1)
Quarter: 2017Q4

REPORT INFORMATION
  Report Type: Spontaneous
  Country: JP (occurrence: JP)
  Receive Date: 20171219
  Receipt Date: 20171219
  Transmission Date: 20180321
  Serious: Yes (Other)
  Sender: FDA-Public Use
  Company Number: JP-OTSUKA-JP-2011-11672

PATIENT
  Age: 49 Year
  Sex: Male

DRUGS (8)
  1. PAXIL [Suspect]
     Active Substance: PAROXETINE HYDROCHLORIDE
     Dosage: 10 MG, QD
     Route: 048
     Dates: end: 20111006
  2. CHINESE MEDICINES [Concomitant]
     Indication: HYPOTENSION
     Route: 065
  3. ABILIFY [Suspect]
     Active Substance: ARIPIPRAZOLE
     Indication: DEPRESSION
     Dosage: 3 MG, QD
     Route: 048
     Dates: start: 2010, end: 20111007
  4. CYMBALTA [Suspect]
     Active Substance: DULOXETINE HYDROCHLORIDE
     Dosage: 20-40 MG MILLIGRAM(S), DAILY DOSE
     Route: 048
     Dates: start: 2011, end: 20111007
  5. PAROXETINE. [Suspect]
     Active Substance: PAROXETINE
     Dosage: TABS.
     Route: 048
     Dates: end: 20111006
  6. RISUMIC [Suspect]
     Active Substance: AMEZINIUM METILSULFATE
     Dosage: 20 MG, QD
     Route: 048
     Dates: start: 20110924, end: 20111006
  7. CYMBALTA [Suspect]
     Active Substance: DULOXETINE HYDROCHLORIDE
     Dosage: CAPS,1DF=20-40MG.
     Route: 048
     Dates: start: 2011, end: 20111007
  8. ABILIFY [Suspect]
     Active Substance: ARIPIPRAZOLE
     Indication: DEPRESSION
     Dosage: ORAL POWDER,1% PERCENT.
     Route: 048
     Dates: start: 2010, end: 20111007

REACTIONS (1)
  - Syncope [Recovered/Resolved]

NARRATIVE: CASE EVENT DATE: 201110
